FAERS Safety Report 24970204 (Version 1)
Quarter: 2025Q1

REPORT INFORMATION
  Report Type: Spontaneous
  Country: FR (occurrence: FR)
  Receive Date: 20250214
  Receipt Date: 20250214
  Transmission Date: 20250409
  Serious: Yes (Other)
  Sender: TEVA
  Company Number: None

PATIENT
  Age: 0 Day
  Sex: Male
  Weight: 3.16 kg

DRUGS (1)
  1. QUETIAPINE [Suspect]
     Active Substance: QUETIAPINE
     Indication: Bipolar disorder
     Route: 064
     Dates: start: 2022, end: 20230117

REACTIONS (5)
  - Apnoea [Recovered/Resolved]
  - Bradycardia [Recovered/Resolved]
  - Feeding disorder [Recovered/Resolved]
  - Hypotonia [Recovered/Resolved]
  - Maternal exposure during pregnancy [Recovered/Resolved]

NARRATIVE: CASE EVENT DATE: 20230117
